FAERS Safety Report 25345970 (Version 1)
Quarter: 2025Q2

REPORT INFORMATION
  Report Type: Spontaneous
  Country: IN (occurrence: IN)
  Receive Date: 20250522
  Receipt Date: 20250522
  Transmission Date: 20250717
  Serious: Yes (Life-Threatening, Other)
  Sender: SANOFI AVENTIS
  Company Number: IN-DialogSolutions-SAAVPROD-PI770031-C1

PATIENT
  Age: 21 Year
  Sex: Male

DRUGS (4)
  1. ANTI-THYMOCYTE GLOBULIN (RABBIT) NOS [Suspect]
     Active Substance: LAPINE T-LYMPHOCYTE IMMUNE GLOBULIN
     Indication: End stage renal disease
  2. PREDNISOLONE [Suspect]
     Active Substance: PREDNISOLONE
     Indication: End stage renal disease
  3. TACROLIMUS [Suspect]
     Active Substance: TACROLIMUS
     Indication: End stage renal disease
  4. MYCOPHENOLATE MOFETIL [Suspect]
     Active Substance: MYCOPHENOLATE MOFETIL
     Indication: End stage renal disease

REACTIONS (9)
  - Vascular rupture [Unknown]
  - Mucormycosis [Recovering/Resolving]
  - Renal graft infection [Recovering/Resolving]
  - Graft complication [Recovering/Resolving]
  - Anuria [Recovering/Resolving]
  - Graft thrombosis [Recovering/Resolving]
  - Post procedural haematoma [Recovering/Resolving]
  - Abdominal pain [Recovering/Resolving]
  - Catheter site haemorrhage [Recovering/Resolving]
